FAERS Safety Report 5123927-4 (Version None)
Quarter: 2006Q4

REPORT INFORMATION
  Report Type: 
  Country: None (occurrence: None)
  Receive Date: 20060807
  Receipt Date: 20060203
  Transmission Date: 20070319
  Serious: Yes (Other)
  Sender: FDA-Public Use
  Company Number: 144516USA

PATIENT

DRUGS (2)
  1. METOCLOPRAMID [Suspect]
     Indication: GASTROOESOPHAGEAL REFLUX DISEASE
     Dates: start: 19990625, end: 20020412
  2. METOCLOPRAMID [Suspect]
     Indication: NAUSEA
     Dates: start: 19990625, end: 20020412

REACTIONS (2)
  - AKATHISIA [None]
  - TARDIVE DYSKINESIA [None]
